FAERS Safety Report 5355288-X (Version None)
Quarter: 2007Q2

REPORT INFORMATION
  Report Type: 
  Country: None (occurrence: None)
  Receive Date: 20070531
  Receipt Date: 20070212
  Transmission Date: 20071010
  Serious: Yes (Other)
  Sender: FDA-Public Use
  Company Number: 2007012077

PATIENT
  Age: 48 Year
  Sex: Female
  Weight: 104.8 kg

DRUGS (11)
  1. SOLU-MEDROL [Suspect]
     Indication: ASTHMA
     Dates: start: 20061001
  2. HYDROCHLOROTHIAZIDE [Concomitant]
  3. MONOPRIL [Concomitant]
  4. PREMARIN [Concomitant]
  5. ZOLOFT [Concomitant]
  6. MONTELUKAST SODIUM [Concomitant]
  7. ADVAIR DISKUS 100/50 [Concomitant]
  8. SPIRIVA [Concomitant]
  9. XANAX [Concomitant]
  10. AMBIEN [Concomitant]
  11. LIPITOR [Concomitant]

REACTIONS (3)
  - CHRONIC OBSTRUCTIVE PULMONARY DISEASE [None]
  - DIABETES MELLITUS [None]
  - EMPHYSEMA [None]
